FAERS Safety Report 6753149-2 (Version None)
Quarter: 2010Q2

REPORT INFORMATION
  Report Type: 
  Country: None (occurrence: None)
  Receive Date: 20100603
  Receipt Date: 20100524
  Transmission Date: 20101027
  Serious: Yes (Other)
  Sender: FDA-Public Use
  Company Number: US-PFIZER INC-2010065217

PATIENT
  Sex: Female
  Weight: 65.76 kg

DRUGS (2)
  1. SUTENT [Suspect]
     Indication: RENAL CELL CARCINOMA
     Dosage: UNK MG, UNK
     Dates: start: 20100301
  2. ARIXTRA [Concomitant]
     Indication: THROMBOSIS
     Dosage: 7.5 MG, 1X/DAY

REACTIONS (1)
  - MEMORY IMPAIRMENT [None]
